FAERS Safety Report 10348610 (Version 1)
Quarter: 2014Q3

REPORT INFORMATION
  Report Type: Spontaneous
  Country: GB (occurrence: None)
  Receive Date: 20140725
  Receipt Date: 20140725
  Transmission Date: 20150326
  Serious: Yes (Disabling)
  Sender: FDA-Public Use
  Company Number: GB-DEXPHARM-20140470

PATIENT
  Age: 33 Year
  Sex: Male

DRUGS (1)
  1. OMEPRAZOLE (OMEPRAZOLE) [Suspect]
     Active Substance: OMEPRAZOLE
     Dosage: 40 MG MILLIGRAM(S), 1 N 1 DAYS

REACTIONS (7)
  - Asthenia [None]
  - Somnolence [None]
  - Musculoskeletal stiffness [None]
  - Vessel perforation [None]
  - Eye haemorrhage [None]
  - Wheezing [None]
  - Chromaturia [None]

NARRATIVE: CASE EVENT DATE: 20140621
